FAERS Safety Report 25995084 (Version 1)
Quarter: 2025Q4

REPORT INFORMATION
  Report Type: Spontaneous
  Country: US (occurrence: None)
  Receive Date: 20251103
  Receipt Date: 20251103
  Transmission Date: 20260118
  Serious: Yes (Hospitalization)
  Sender: FDA-CTU
  Company Number: None

PATIENT
  Age: 24 Year
  Sex: Female
  Weight: 118 kg

DRUGS (1)
  1. GAMUNEX-C [Suspect]
     Active Substance: HUMAN IMMUNOGLOBULIN G
     Indication: Dermatomyositis
     Dosage: OTHER FREQUENCY : DAILY FOR 5 DAYS;?
     Route: 041
     Dates: start: 20251020, end: 20251024

REACTIONS (5)
  - Infusion related reaction [None]
  - Headache [None]
  - Asthenia [None]
  - Nausea [None]
  - Meningitis aseptic [None]

NARRATIVE: CASE EVENT DATE: 20251030
